FAERS Safety Report 20063226 (Version 1)
Quarter: 2021Q4

REPORT INFORMATION
  Report Type: Spontaneous
  Country: GB (occurrence: None)
  Receive Date: 20211112
  Receipt Date: 20211112
  Transmission Date: 20220304
  Serious: Yes (Hospitalization)
  Sender: FDA-Public Use
  Company Number: 2021A798616

PATIENT
  Age: 56 Year
  Sex: Male
  Weight: 112 kg

DRUGS (4)
  1. DAPAGLIFLOZIN [Suspect]
     Active Substance: DAPAGLIFLOZIN
     Indication: Diabetes mellitus
     Dosage: 10MGS
     Route: 048
     Dates: start: 20191126, end: 20210909
  2. METFORMIN [Concomitant]
     Active Substance: METFORMIN HYDROCHLORIDE
     Indication: Ill-defined disorder
  3. RAMIPRIL [Concomitant]
     Active Substance: RAMIPRIL
     Indication: Ill-defined disorder
  4. SITAGLIPTIN [Concomitant]
     Active Substance: SITAGLIPTIN
     Indication: Ill-defined disorder

REACTIONS (1)
  - Necrotising fasciitis [Recovered/Resolved with Sequelae]

NARRATIVE: CASE EVENT DATE: 20210911
